FAERS Safety Report 9528357 (Version 1)
Quarter: 2013Q1

REPORT INFORMATION
  Report Type: Spontaneous
  Country: US (occurrence: None)
  Receive Date: 20130314
  Receipt Date: 20130314
  Transmission Date: 20140127
  Serious: Yes (Other)
  Sender: FDA-Public Use
  Company Number: 1208USA001153

PATIENT
  Age: 58 Year
  Sex: Male

DRUGS (3)
  1. PEG-INTRON [Suspect]
     Indication: HEPATITIS C
     Dosage: REDIPEN
     Route: 058
     Dates: start: 20120625
  2. VICTRELIS [Suspect]
     Route: 048
  3. RIBAPAK [Suspect]
     Indication: HEPATITIS C
     Dates: end: 20120625

REACTIONS (15)
  - Constipation [None]
  - Dyspepsia [None]
  - Dyspnoea [None]
  - Abdominal pain upper [None]
  - Headache [None]
  - Nausea [None]
  - Haematocrit decreased [None]
  - Platelet count decreased [None]
  - Abdominal discomfort [None]
  - Depression [None]
  - Respiratory tract congestion [None]
  - White blood cell count decreased [None]
  - Fatigue [None]
  - Haemoglobin decreased [None]
  - Thrombocytopenia [None]
